FAERS Safety Report 9718794 (Version 1)
Quarter: 2013Q4

REPORT INFORMATION
  Report Type: Spontaneous
  Country: US (occurrence: US)
  Receive Date: 20131127
  Receipt Date: 20131127
  Transmission Date: 20140711
  Serious: No
  Sender: FDA-Public Use
  Company Number: US-PFIZER INC-2013339057

PATIENT
  Age: 48 Year
  Sex: Female
  Weight: 104 kg

DRUGS (2)
  1. LYRICA [Suspect]
     Indication: FIBROMYALGIA
     Dosage: 200 MG, 3X/DAY
  2. CYMBALTA [Concomitant]
     Indication: DEPRESSION
     Dosage: 90MG TWO TABLETS IN DAY AND ONE TABLET IN NIGHT, 2X/DAY

REACTIONS (3)
  - Hunger [Unknown]
  - Weight increased [Unknown]
  - Therapeutic response unexpected [Unknown]
